FAERS Safety Report 9668897 (Version 3)
Quarter: 2014Q1

REPORT INFORMATION
  Report Type: Spontaneous
  Country: US (occurrence: US)
  Receive Date: 20131105
  Receipt Date: 20140207
  Transmission Date: 20141002
  Serious: Yes (Death, Hospitalization)
  Sender: FDA-Public Use
  Company Number: PHEH2013US022982

PATIENT
  Age: 71 Year
  Sex: Male

DRUGS (3)
  1. CLOZARIL [Suspect]
     Indication: DEMENTIA
     Dosage: UNK
     Dates: start: 20060830
  2. CLOZARIL [Suspect]
     Indication: HALLUCINATION
  3. CLOZARIL [Suspect]
     Indication: DELUSION

REACTIONS (4)
  - Death [Fatal]
  - Parkinson^s disease [Unknown]
  - Mobility decreased [Unknown]
  - Cognitive disorder [Unknown]
